FAERS Safety Report 12693111 (Version 2)
Quarter: 2016Q3

REPORT INFORMATION
  Report Type: Spontaneous
  Country: JP (occurrence: JP)
  Receive Date: 20160829
  Receipt Date: 20160916
  Transmission Date: 20161109
  Serious: Yes (Other)
  Sender: FDA-Public Use
  Company Number: JP-BAYER-2016-162150

PATIENT
  Age: 48 Year
  Sex: Male

DRUGS (3)
  1. CLOPIDOGREL [Suspect]
     Active Substance: CLOPIDOGREL BISULFATE
     Indication: ANTIPLATELET THERAPY
     Dosage: UNK
     Route: 048
     Dates: start: 2009
  2. WARFARIN [Suspect]
     Active Substance: WARFARIN
     Dosage: UNK
     Route: 048
     Dates: start: 2009
  3. BAYASPIRIN [Suspect]
     Active Substance: ASPIRIN
     Dosage: UNK
     Route: 048
     Dates: start: 2009

REACTIONS (6)
  - Cardiac tamponade [Recovering/Resolving]
  - Cardiogenic shock [Recovering/Resolving]
  - Pericardial effusion [None]
  - Pericardial haemorrhage [Recovering/Resolving]
  - Drug administration error [None]
  - Labelled drug-drug interaction medication error [None]

NARRATIVE: CASE EVENT DATE: 2013
